FAERS Safety Report 5522707-5 (Version None)
Quarter: 2007Q4

REPORT INFORMATION
  Report Type: 
  Country: None (occurrence: None)
  Receive Date: 20071120
  Receipt Date: 20071114
  Transmission Date: 20080405
  Serious: Yes (Hospitalization, Other)
  Sender: FDA-Public Use
  Company Number: US-PFIZER INC-2007096235

PATIENT
  Sex: Female

DRUGS (2)
  1. LIPITOR [Suspect]
  2. THYROID HORMONES [Concomitant]

REACTIONS (20)
  - ABDOMINAL PAIN UPPER [None]
  - ARTHRALGIA [None]
  - ARTHROPATHY [None]
  - CARDIAC DISORDER [None]
  - CONVULSION [None]
  - DRUG TOXICITY [None]
  - DYSKINESIA [None]
  - EYE DISORDER [None]
  - GAIT DISTURBANCE [None]
  - HEADACHE [None]
  - HICCUPS [None]
  - INCREASED UPPER AIRWAY SECRETION [None]
  - JOINT CREPITATION [None]
  - MUSCLE TWITCHING [None]
  - NERVE INJURY [None]
  - NEURALGIA [None]
  - PARAESTHESIA [None]
  - SURGERY [None]
  - URINARY TRACT DISORDER [None]
  - WITHDRAWAL SYNDROME [None]
